FAERS Safety Report 5121736-3 (Version None)
Quarter: 2006Q4

REPORT INFORMATION
  Report Type: 
  Country: None (occurrence: None)
  Receive Date: 20061006
  Receipt Date: 20060928
  Transmission Date: 20070319
  Serious: Yes (Hospitalization)
  Sender: FDA-Public Use
  Company Number: FR-AVENTIS-200613415FR

PATIENT
  Age: 70 Year
  Sex: Female

DRUGS (9)
  1. DAONIL [Suspect]
     Route: 048
  2. GLUCOPHAGE [Suspect]
     Route: 048
  3. KARDEGIC                           /00002703/ [Suspect]
     Route: 048
     Dates: end: 20060821
  4. ATHYMIL [Suspect]
     Route: 048
  5. TRANXENE [Suspect]
     Route: 048
  6. LIPANOR [Suspect]
     Route: 048
  7. COVERSYL                           /00790701/ [Concomitant]
  8. BI-PRETERAX [Concomitant]
  9. NEBILOX [Concomitant]

REACTIONS (3)
  - ANAEMIA [None]
  - GASTRIC ULCER [None]
  - MELAENA [None]
